FAERS Safety Report 17395897 (Version 1)
Quarter: 2020Q1

REPORT INFORMATION
  Report Type: Spontaneous
  Country: FR (occurrence: FR)
  Receive Date: 20200210
  Receipt Date: 20200210
  Transmission Date: 20200409
  Serious: Yes (Other)
  Sender: FDA-Public Use
  Company Number: FR-MYLANLABS-2020M1013472

PATIENT
  Age: 41 Year
  Sex: Female
  Weight: 52 kg

DRUGS (10)
  1. DEXAMETHASONE. [Suspect]
     Active Substance: DEXAMETHASONE
     Indication: AMYLOIDOSIS
     Dosage: 40 MILLIGRAM, QW
     Route: 065
     Dates: start: 20190618
  2. VELCADE [Suspect]
     Active Substance: BORTEZOMIB
     Dosage: 1 DOSAGE FORM, QW
     Dates: start: 201901, end: 201904
  3. ENDOXAN                            /00021101/ [Suspect]
     Active Substance: CYCLOPHOSPHAMIDE
     Indication: AMYLOIDOSIS
     Dosage: MOST RECENT DOSE WAS RECEIVE DON 02/JUL/2019
     Route: 048
     Dates: start: 20190618
  4. TRIMETHOPRIM SULFAMETHOXAZOLE [Suspect]
     Active Substance: SULFAMETHOXAZOLE\TRIMETHOPRIM
     Indication: AMYLOIDOSIS
     Dosage: UNK
     Dates: start: 201901, end: 201904
  5. DARZALEX [Suspect]
     Active Substance: DARATUMUMAB
     Indication: AMYLOIDOSIS
     Dosage: 1 DOSAGE FORM, QW
     Route: 065
     Dates: start: 201901, end: 201904
  6. VELCADE [Suspect]
     Active Substance: BORTEZOMIB
     Indication: AMYLOIDOSIS
     Dosage: 1 DOSAGE FORM, QW
     Route: 065
     Dates: start: 20190618
  7. CLAMOXYL                           /00249601/ [Suspect]
     Active Substance: AMOXICILLIN
     Indication: INFECTION PROPHYLAXIS
     Dosage: 2 DOSAGE FORM, QD
     Route: 065
  8. ZELITREX [Suspect]
     Active Substance: VALACYCLOVIR HYDROCHLORIDE
     Indication: INFECTION PROPHYLAXIS
     Dosage: 1 DOSAGE FORM, QD
     Route: 048
     Dates: start: 20190618
  9. RAMIPRIL. [Suspect]
     Active Substance: RAMIPRIL
     Indication: PROTEINURIA
     Dosage: 2.5 MICROGRAM, QW
     Route: 065
     Dates: start: 20181017
  10. TRIMETHOPRIM SULFAMETHOXAZOLE [Suspect]
     Active Substance: SULFAMETHOXAZOLE\TRIMETHOPRIM
     Dosage: F.C. TABLETS 800/160 MG 10
     Dates: start: 20190618, end: 20190717

REACTIONS (3)
  - Intentional product use issue [Unknown]
  - Off label use [Unknown]
  - Pseudomyopia [Recovered/Resolved]

NARRATIVE: CASE EVENT DATE: 20190717
